FAERS Safety Report 4343103-2 (Version None)
Quarter: 2004Q2

REPORT INFORMATION
  Report Type: 
  Country: None (occurrence: None)
  Receive Date: 20040421
  Receipt Date: 20040205
  Transmission Date: 20050107
  Serious: Yes (Other)
  Sender: FDA-Public Use
  Company Number: US-GLAXOSMITHKLINE-A0496785A

PATIENT
  Age: 6 Month
  Sex: Male
  Weight: 6.8 kg

DRUGS (1)
  1. ZANTAC [Suspect]
     Route: 048
     Dates: start: 20031101, end: 20040101

REACTIONS (3)
  - CONFUSIONAL STATE [None]
  - CONVULSION [None]
  - TREMOR [None]
